FAERS Safety Report 8030677-3 (Version None)
Quarter: 2012Q1

REPORT INFORMATION
  Report Type: 
  Country: None (occurrence: None)
  Receive Date: 20120109
  Receipt Date: 20120103
  Transmission Date: 20120608
  Serious: Yes (Death, Hospitalization)
  Sender: FDA-Public Use
  Company Number: PHHY2011DE113472

PATIENT
  Sex: Female
  Weight: 124 kg

DRUGS (13)
  1. METAMIZOL [Concomitant]
     Indication: PAIN
  2. AFINITOR [Suspect]
     Indication: RENAL CELL CARCINOMA
     Dosage: 10 MG, DAILY
     Route: 048
     Dates: start: 20111114, end: 20111212
  3. ALLOPURINOL [Concomitant]
     Indication: HYPERURICAEMIA
  4. NITRIC OXIDE [Concomitant]
     Indication: HYPERTENSION
  5. AT1-RECEPTOR BLOCKER [Concomitant]
     Indication: HYPERTENSION
  6. MIRTAZAPINE [Concomitant]
     Indication: DEPRESSION
  7. GABAPENTIN [Concomitant]
     Indication: CONVULSION
  8. STEROIDS NOS [Concomitant]
     Route: 048
  9. PHENPROCOUMON [Concomitant]
     Indication: ANTICOAGULANT THERAPY
  10. PROTON PUMP INHIBITORS [Concomitant]
  11. OPIOIDS [Concomitant]
     Indication: PAIN
  12. VITAMIN TAB [Concomitant]
  13. BETA BLOCKING AGENTS [Concomitant]
     Indication: HYPERTENSION

REACTIONS (7)
  - PLEURAL EFFUSION [None]
  - NEOPLASM PROGRESSION [None]
  - OEDEMA [None]
  - RENAL CELL CARCINOMA [None]
  - MULTI-ORGAN FAILURE [None]
  - DYSPNOEA [None]
  - NEOPLASM MALIGNANT [None]
